FAERS Safety Report 25779686 (Version 1)
Quarter: 2025Q3

REPORT INFORMATION
  Report Type: Spontaneous
  Country: EU (occurrence: EU)
  Receive Date: 20250909
  Receipt Date: 20250909
  Transmission Date: 20251021
  Serious: Yes (Life-Threatening, Hospitalization)
  Sender: MERCK SHARP & DOHME LLC
  Company Number: None

PATIENT
  Age: 53 Year
  Sex: Female
  Weight: 65 kg

DRUGS (24)
  1. KEYTRUDA [Suspect]
     Active Substance: PEMBROLIZUMAB
     Indication: Metastatic uterine cancer
     Route: 042
     Dates: start: 20250527, end: 20250527
  2. KEYTRUDA [Suspect]
     Active Substance: PEMBROLIZUMAB
     Indication: Metastatic uterine cancer
     Route: 042
     Dates: start: 20250716, end: 20250716
  3. EMEND [Concomitant]
     Active Substance: APREPITANT
  4. PACLITAXEL [Suspect]
     Active Substance: PACLITAXEL
     Indication: Metastatic uterine cancer
     Route: 042
     Dates: start: 20250806, end: 20250806
  5. PACLITAXEL [Suspect]
     Active Substance: PACLITAXEL
     Indication: Metastatic uterine cancer
     Route: 042
     Dates: start: 20250527, end: 20250527
  6. PACLITAXEL [Suspect]
     Active Substance: PACLITAXEL
     Indication: Metastatic uterine cancer
     Route: 042
     Dates: start: 20250716, end: 20250716
  7. PACLITAXEL [Suspect]
     Active Substance: PACLITAXEL
     Indication: Metastatic uterine cancer
     Route: 042
     Dates: start: 20250625, end: 20250625
  8. PANTOPRAZOLE [Concomitant]
     Active Substance: PANTOPRAZOLE
  9. PRIMPERAN [Concomitant]
     Active Substance: METOCLOPRAMIDE HYDROCHLORIDE
  10. FILGRASTIM [Concomitant]
     Active Substance: FILGRASTIM
  11. BEVACIZUMAB [Suspect]
     Active Substance: BEVACIZUMAB
     Indication: Metastatic uterine cancer
     Route: 042
     Dates: start: 20250806, end: 20250806
  12. CARBOPLATIN [Suspect]
     Active Substance: CARBOPLATIN
     Indication: Metastatic uterine cancer
     Route: 042
     Dates: start: 20250527, end: 20250527
  13. CARBOPLATIN [Suspect]
     Active Substance: CARBOPLATIN
     Indication: Metastatic uterine cancer
     Route: 042
     Dates: start: 20250716, end: 20250716
  14. CARBOPLATIN [Suspect]
     Active Substance: CARBOPLATIN
     Indication: Metastatic uterine cancer
     Route: 042
     Dates: start: 20250625, end: 20250625
  15. CARBOPLATIN [Suspect]
     Active Substance: CARBOPLATIN
     Indication: Metastatic uterine cancer
     Route: 042
     Dates: start: 20250806, end: 20250806
  16. HYDROXYZINE HYDROCHLORIDE [Concomitant]
     Active Substance: HYDROXYZINE HYDROCHLORIDE
  17. OLANZAPINE [Concomitant]
     Active Substance: OLANZAPINE
  18. ONDANSETRON [Concomitant]
     Active Substance: ONDANSETRON
  19. PREDNISONE [Concomitant]
     Active Substance: PREDNISONE
  20. CLARELUX 500 microgrammes/g, cr?me [Concomitant]
     Indication: Drug eruption
     Route: 003
     Dates: start: 20250724, end: 20250804
  21. CLARELUX 500 microgrammes/g, cr?me [Concomitant]
     Indication: Drug eruption
     Route: 003
     Dates: start: 20250620, end: 20250621
  22. DIPROSONE [Concomitant]
     Active Substance: BETAMETHASONE DIPROPIONATE
     Indication: Drug eruption
     Route: 003
     Dates: start: 20250730, end: 20250804
  23. ACETAMINOPHEN [Concomitant]
     Active Substance: ACETAMINOPHEN
  24. LEVOCETIRIZINE HYDROCHLORIDE [Concomitant]
     Active Substance: LEVOCETIRIZINE HYDROCHLORIDE

REACTIONS (2)
  - Drug eruption [Not Recovered/Not Resolved]
  - Toxic epidermal necrolysis [Not Recovered/Not Resolved]

NARRATIVE: CASE EVENT DATE: 20250603
